FAERS Safety Report 5014147-2 (Version None)
Quarter: 2006Q2

REPORT INFORMATION
  Report Type: 
  Country: None (occurrence: None)
  Receive Date: 20060414
  Receipt Date: 20060206
  Transmission Date: 20061013
  Serious: No
  Sender: FDA-Public Use
  Company Number: 2006SP000630

PATIENT
  Age: 51 Year
  Sex: Female
  Weight: 61.2356 kg

DRUGS (6)
  1. LUNESTA [Suspect]
     Indication: INSOMNIA
     Dosage: 2 MG;HS;ORAL
     Route: 048
     Dates: start: 20060203
  2. DOXEPIN [Concomitant]
  3. BUTALBITAL [Concomitant]
  4. ACETIMINOPHEN + CAFFEINE [Concomitant]
  5. GUAIFENESIN W/ PSEUDOEPHEDRINE [Concomitant]
  6. TRAZODONE HCL [Concomitant]

REACTIONS (1)
  - INSOMNIA [None]
